FAERS Safety Report 10383004 (Version 8)
Quarter: 2022Q4

REPORT INFORMATION
  Report Type: Spontaneous
  Country: US (occurrence: US)
  Receive Date: 20140813
  Receipt Date: 20221227
  Transmission Date: 20230112
  Serious: Yes (Hospitalization, Other)
  Sender: FDA-Public Use
  Company Number: US-SA-2014SA082625

PATIENT
  Age: 26 Year
  Sex: Female
  Weight: 83.9 kg

DRUGS (2)
  1. FABRAZYME [Suspect]
     Active Substance: AGALSIDASE BETA
     Indication: Fabry^s disease
     Dosage: 75 MG, QOW
     Route: 042
     Dates: start: 20140529
  2. FABRAZYME [Suspect]
     Active Substance: AGALSIDASE BETA
     Indication: Lipidosis
     Dosage: 70 MG, QOW
     Route: 042

REACTIONS (6)
  - Pulmonary mass [Unknown]
  - Dyspnoea [Unknown]
  - Skin disorder [Unknown]
  - Central venous catheter removal [Unknown]
  - Weight fluctuation [Unknown]
  - Pyrexia [Recovered/Resolved]

NARRATIVE: CASE EVENT DATE: 20140602
